FAERS Safety Report 14754857 (Version 1)
Quarter: 2018Q2

REPORT INFORMATION
  Report Type: Spontaneous
  Country: US (occurrence: US)
  Receive Date: 20180413
  Receipt Date: 20180413
  Transmission Date: 20180711
  Serious: Yes (Other)
  Sender: FDA-Public Use
  Company Number: US-KADMON PHARMACEUTICALS, LLC-KAD-201804-01291

PATIENT
  Sex: Female

DRUGS (2)
  1. RIBAVIRIN. [Suspect]
     Active Substance: RIBAVIRIN
  2. CHANTIX [Concomitant]
     Active Substance: VARENICLINE TARTRATE
     Route: 065

REACTIONS (16)
  - Eye haemorrhage [Unknown]
  - Open fracture [Unknown]
  - Hallucination [Unknown]
  - Cerebrovascular accident [Unknown]
  - Lichen planus [Unknown]
  - Depressed mood [Recovered/Resolved]
  - Visual impairment [Unknown]
  - Pre-existing condition improved [Unknown]
  - Rash [Unknown]
  - Hypertension [Unknown]
  - Pain [Unknown]
  - Rash papular [Unknown]
  - Visual field defect [Unknown]
  - Tooth disorder [Unknown]
  - Stress [Unknown]
  - Oral pain [Unknown]
